FAERS Safety Report 14649346 (Version 1)
Quarter: 2018Q1

REPORT INFORMATION
  Report Type: Spontaneous
  Country: US (occurrence: US)
  Receive Date: 20180316
  Receipt Date: 20180316
  Transmission Date: 20180509
  Serious: No
  Sender: FDA-Public Use
  Company Number: US-TARO-2017TAR00219

PATIENT
  Age: 25 Year
  Sex: Female

DRUGS (1)
  1. CICLOPIROX SHAMPOO 1% [Suspect]
     Active Substance: CICLOPIROX
     Dosage: UNK
     Dates: start: 201703

REACTIONS (1)
  - Alopecia [Not Recovered/Not Resolved]

NARRATIVE: CASE EVENT DATE: 201703
